FAERS Safety Report 8457836-X (Version None)
Quarter: 2012Q2

REPORT INFORMATION
  Report Type: 
  Country: None (occurrence: None)
  Receive Date: 20120618
  Receipt Date: 20120618
  Transmission Date: 20120825
  Serious: No
  Sender: FDA-Public Use
  Company Number: None

PATIENT
  Sex: Female

DRUGS (5)
  1. PEGASYS [Concomitant]
  2. RIBAVIRIN [Suspect]
     Indication: HEPATITIS C
     Dosage: 600MG BID PO
     Route: 048
     Dates: start: 20120607
  3. GABAPENTIN [Concomitant]
  4. LEXAPRO [Concomitant]
  5. NORVASC [Concomitant]

REACTIONS (2)
  - DYSPEPSIA [None]
  - CHEST PAIN [None]
